FAERS Safety Report 4889693-2 (Version None)
Quarter: 2006Q1

REPORT INFORMATION
  Report Type: 
  Country: None (occurrence: None)
  Receive Date: 20060120
  Receipt Date: 20060111
  Transmission Date: 20060701
  Serious: Yes (Life-Threatening, Hospitalization, Other)
  Sender: FDA-Public Use
  Company Number: 2006-01-0643

PATIENT
  Age: 76 Day
  Sex: Female
  Weight: 4.5 kg

DRUGS (1)
  1. CELESTONE [Suspect]
     Indication: NASOPHARYNGITIS
     Dosage: .25MG BID; ORAL
     Route: 048

REACTIONS (11)
  - BENIGN INTRACRANIAL HYPERTENSION [None]
  - CRYING [None]
  - CUSHINGOID [None]
  - DRUG INEFFECTIVE [None]
  - ESCHERICHIA INFECTION [None]
  - FEEDING DISORDER OF INFANCY OR EARLY CHILDHOOD [None]
  - FONTANELLE BULGING [None]
  - INAPPROPRIATE SCHEDULE OF DRUG ADMINISTRATION [None]
  - IRRITABILITY [None]
  - RESPIRATORY DISTRESS [None]
  - SEPTIC SHOCK [None]
